FAERS Safety Report 10717458 (Version 1)
Quarter: 2015Q1

REPORT INFORMATION
  Report Type: Other
  Country: GB (occurrence: GB)
  Receive Date: 20150116
  Receipt Date: 20150116
  Transmission Date: 20150721
  Serious: Yes (Other)
  Sender: FDA-Public Use
  Company Number: GB-SHIRE-GB201500193

PATIENT
  Sex: Female

DRUGS (1)
  1. VPRIV [Suspect]
     Active Substance: VELAGLUCERASE ALFA
     Indication: GAUCHER^S DISEASE
     Dosage: 3600 IU, 1X/2WKS (FORTNIGHTLY)
     Route: 041
     Dates: start: 20120831

REACTIONS (5)
  - Gastric disorder [Unknown]
  - Weight decreased [Not Recovered/Not Resolved]
  - Gastrooesophageal reflux disease [Not Recovered/Not Resolved]
  - Rash vesicular [Not Recovered/Not Resolved]
  - Dysphagia [Not Recovered/Not Resolved]
